FAERS Safety Report 4638775-9 (Version None)
Quarter: 2005Q2

REPORT INFORMATION
  Report Type: 
  Country: None (occurrence: None)
  Receive Date: 20050419
  Receipt Date: 20050406
  Transmission Date: 20051028
  Serious: Yes (Hospitalization)
  Sender: FDA-Public Use
  Company Number: US-BRISTOL-MYERS SQUIBB COMPANY-12923876

PATIENT
  Age: 15 Year
  Sex: Female

DRUGS (10)
  1. CISPLATIN [Suspect]
     Indication: COLON CANCER METASTATIC
     Dates: start: 20001027, end: 20010430
  2. CETUXIMAB [Suspect]
     Indication: COLON CANCER METASTATIC
     Route: 042
     Dates: start: 20001027, end: 20010430
  3. IMODIUM [Concomitant]
  4. FLAGYL [Concomitant]
  5. PRILOSEC [Concomitant]
     Dates: start: 20010416, end: 20010416
  6. DECADRON [Concomitant]
  7. ATIVAN [Concomitant]
  8. ZOFRAN [Concomitant]
  9. THORAZINE [Concomitant]
     Dates: start: 20010421
  10. CLONAZEPAM [Concomitant]
     Dates: start: 20010421

REACTIONS (6)
  - DEHYDRATION [None]
  - HYPERTRIGLYCERIDAEMIA [None]
  - LOSS OF CONSCIOUSNESS [None]
  - NAUSEA [None]
  - VOMITING [None]
  - WEIGHT DECREASED [None]
